FAERS Safety Report 8765768 (Version 1)
Quarter: 2012Q4

REPORT INFORMATION
  Report Type: 
  Country: US (occurrence: US)
  Receive Date: 20120904
  Receipt Date: 20120904
  Transmission Date: 20130627
  Serious: No
  Sender: FDA-Public Use
  Company Number: US-PFIZER INC-2012215223

PATIENT
  Age: 49 Year
  Sex: Female

DRUGS (3)
  1. ESTRING [Suspect]
     Indication: ATROPHIC VULVOVAGINITIS
     Dosage: UNK, every three months
     Route: 067
     Dates: start: 201112
  2. ESTRING [Suspect]
     Dosage: UNK
     Route: 067
     Dates: end: 20120820
  3. OMEPRAZOLE [Concomitant]
     Dosage: UNK

REACTIONS (4)
  - Rash generalised [Recovered/Resolved]
  - Nausea [Recovered/Resolved]
  - Vomiting [Recovered/Resolved]
  - Dyspepsia [Recovered/Resolved]
